FAERS Safety Report 4348458-0 (Version None)
Quarter: 2004Q2

REPORT INFORMATION
  Report Type: 
  Country: None (occurrence: None)
  Receive Date: 20040423
  Receipt Date: 20040415
  Transmission Date: 20050107
  Serious: Yes (Death, Hospitalization)
  Sender: FDA-Public Use
  Company Number: 2004209368US

PATIENT
  Age: 75 Year
  Sex: Female

DRUGS (1)
  1. LONITEN [Suspect]
     Indication: HYPERTENSION
     Dates: start: 20020304, end: 20020401

REACTIONS (14)
  - ARTERIOSCLEROSIS [None]
  - BRONCHOPNEUMONIA [None]
  - CEREBRAL ATROPHY [None]
  - DISSEMINATED INTRAVASCULAR COAGULATION [None]
  - GASTROINTESTINAL DISORDER [None]
  - GENERAL PHYSICAL HEALTH DETERIORATION [None]
  - GLOMERULOSCLEROSIS [None]
  - GOITRE [None]
  - HAEMORRHAGE [None]
  - HEPATIC NECROSIS [None]
  - MULTI-ORGAN FAILURE [None]
  - PHARMACEUTICAL PRODUCT COMPLAINT [None]
  - RENAL TUBULAR NECROSIS [None]
  - STEVENS-JOHNSON SYNDROME [None]
